FAERS Safety Report 18918480 (Version 1)
Quarter: 2021Q1

REPORT INFORMATION
  Report Type: Spontaneous
  Country: TW (occurrence: TW)
  Receive Date: 20210219
  Receipt Date: 20210219
  Transmission Date: 20210420
  Serious: Yes (Death, Life-Threatening, Hospitalization, Other)
  Sender: FDA-Public Use
  Company Number: TW-VALIDUS PHARMACEUTICALS LLC-TW-2021VAL000095

PATIENT

DRUGS (5)
  1. METHYLPREDNISOLONE. [Suspect]
     Active Substance: METHYLPREDNISOLONE
     Indication: T-CELL TYPE ACUTE LEUKAEMIA
     Dosage: 1 MG/KG, UNK
     Route: 065
  2. PETHIDINE HYDROCHLORIDE [Suspect]
     Active Substance: MEPERIDINE HYDROCHLORIDE
     Indication: ANALGESIC THERAPY
     Dosage: 1 MG/KG; INJECTION
     Route: 065
  3. CYCLOPHOSPHAMIDE. [Suspect]
     Active Substance: CYCLOPHOSPHAMIDE
     Indication: T-CELL TYPE ACUTE LEUKAEMIA
     Dosage: 150 MG/M2, BODY SURFACE AREA
     Route: 065
  4. CYTARABINE. [Suspect]
     Active Substance: CYTARABINE
     Indication: T-CELL TYPE ACUTE LEUKAEMIA
     Dosage: 100 MG/M2, BODY SURFACE AREA
     Route: 065
  5. VINCRISTINE SULFATE. [Suspect]
     Active Substance: VINCRISTINE SULFATE
     Indication: T-CELL TYPE ACUTE LEUKAEMIA
     Dosage: 15 MG/M2, BODY SURFACE AREA
     Route: 065

REACTIONS (9)
  - Hypoxia [Recovering/Resolving]
  - Septic shock [Fatal]
  - Oxygen saturation decreased [Recovering/Resolving]
  - Asphyxia [Recovering/Resolving]
  - Cardio-respiratory arrest [Recovering/Resolving]
  - Pulse absent [Recovering/Resolving]
  - Neutropenia [Fatal]
  - Tumour lysis syndrome [Unknown]
  - Hyperkalaemia [Unknown]
